FAERS Safety Report 7417211-3 (Version None)
Quarter: 2011Q2

REPORT INFORMATION
  Report Type: 
  Country: None (occurrence: None)
  Receive Date: 20110415
  Receipt Date: 20100209
  Transmission Date: 20111010
  Serious: No
  Sender: FDA-Public Use
  Company Number: US-BAYER-201014229NA

PATIENT
  Age: 26 Year
  Sex: Female

DRUGS (2)
  1. MIRENA [Suspect]
     Indication: CONTRACEPTION
     Dosage: 20 ?G/D, CONT
     Route: 015
     Dates: start: 20090806
  2. VITAMINS [Concomitant]

REACTIONS (4)
  - VAGINAL ODOUR [None]
  - GENITAL INFECTION FUNGAL [None]
  - VAGINAL DISCHARGE [None]
  - GENITAL HAEMORRHAGE [None]
